FAERS Safety Report 12424125 (Version 1)
Quarter: 2016Q2

REPORT INFORMATION
  Report Type: Spontaneous
  Country: US (occurrence: US)
  Receive Date: 20160601
  Receipt Date: 20160601
  Transmission Date: 20160815
  Serious: No
  Sender: FDA-Public Use
  Company Number: US-NOVEN PHARMACEUTICALS, INC.-US2016000475

PATIENT

DRUGS (2)
  1. DAYTRANA [Suspect]
     Active Substance: METHYLPHENIDATE
     Indication: PRODUCT USED FOR UNKNOWN INDICATION
     Dosage: 70 MG (USING TWO 30MG PATCHES ALONG WITH HALF CUT 20MG PATCH), UNKNOWN
     Route: 062
  2. DAYTRANA [Suspect]
     Active Substance: METHYLPHENIDATE
     Dosage: 30 UNK, UNK
     Route: 062

REACTIONS (7)
  - Crying [Unknown]
  - Educational problem [Unknown]
  - Drug dose omission [Recovered/Resolved]
  - Wrong technique in product usage process [Unknown]
  - Overdose [Unknown]
  - Emotional disorder [Unknown]
  - Psychomotor hyperactivity [Unknown]
